FAERS Safety Report 24996602 (Version 1)
Quarter: 2025Q1

REPORT INFORMATION
  Report Type: Spontaneous
  Country: US (occurrence: US)
  Receive Date: 20250221
  Receipt Date: 20250221
  Transmission Date: 20250408
  Serious: Yes (Life-Threatening, Hospitalization, Other)
  Sender: AMGEN
  Company Number: US-AMGEN-USASP2025027810

PATIENT

DRUGS (4)
  1. IMDELLTRA [Suspect]
     Active Substance: TARLATAMAB-DLLE
     Indication: Medullary thyroid cancer
     Route: 065
  2. IMDELLTRA [Suspect]
     Active Substance: TARLATAMAB-DLLE
     Indication: Off label use
     Route: 065
  3. IMDELLTRA [Suspect]
     Active Substance: TARLATAMAB-DLLE
     Route: 065
  4. IMDELLTRA [Suspect]
     Active Substance: TARLATAMAB-DLLE
     Route: 065

REACTIONS (6)
  - Cytokine release syndrome [Unknown]
  - Hyperkalaemia [Unknown]
  - Hyperbilirubinaemia [Unknown]
  - Hypocalcaemia [Unknown]
  - Hypophosphataemia [Unknown]
  - Off label use [Unknown]
